FAERS Safety Report 13812914 (Version 1)
Quarter: 2017Q3

REPORT INFORMATION
  Report Type: Spontaneous
  Country: US (occurrence: US)
  Receive Date: 20170729
  Receipt Date: 20170729
  Transmission Date: 20171127
  Serious: No
  Sender: FDA-Public Use
  Company Number: US-009507513-1707USA010688

PATIENT
  Sex: Female

DRUGS (1)
  1. NEXPLANON [Suspect]
     Active Substance: ETONOGESTREL
     Indication: CONTRACEPTION
     Dosage: DOSE/ROUTE:IMPLANTAL
     Dates: start: 20160429, end: 20170526

REACTIONS (3)
  - Weight increased [Unknown]
  - Depression [Unknown]
  - Migraine [Unknown]
